FAERS Safety Report 25500353 (Version 3)
Quarter: 2025Q3

REPORT INFORMATION
  Report Type: Spontaneous
  Country: EU (occurrence: EU)
  Receive Date: 20250701
  Receipt Date: 20250924
  Transmission Date: 20251020
  Serious: Yes (Hospitalization)
  Sender: ANI
  Company Number: EU-ANIPHARMA-2025-RO-000009

PATIENT
  Age: 67 Year
  Sex: Female

DRUGS (7)
  1. CANDESARTAN CILEXETIL [Suspect]
     Active Substance: CANDESARTAN CILEXETIL
     Indication: Hypertension
     Route: 048
  2. ETOPOSIDE [Suspect]
     Active Substance: ETOPOSIDE
  3. CALQUENCE [Suspect]
     Active Substance: ACALABRUTINIB
     Route: 048
  4. CYCLOPHOSPHAMIDE [Suspect]
     Active Substance: CYCLOPHOSPHAMIDE
  5. DEXAMETHASONE [Suspect]
     Active Substance: DEXAMETHASONE
  6. LERCANIDIPINE [Suspect]
     Active Substance: LERCANIDIPINE
  7. METOPROLOL SUCCINATE [Suspect]
     Active Substance: METOPROLOL SUCCINATE

REACTIONS (3)
  - Arthralgia [Recovering/Resolving]
  - Upper respiratory tract infection [Recovered/Resolved]
  - Depression [Unknown]

NARRATIVE: CASE EVENT DATE: 20240815
